FAERS Safety Report 20400478 (Version 2)
Quarter: 2022Q1

REPORT INFORMATION
  Report Type: Spontaneous
  Country: US (occurrence: US)
  Receive Date: 20220131
  Receipt Date: 20220201
  Transmission Date: 20220423
  Serious: Yes (Hospitalization, Other)
  Sender: FDA-Public Use
  Company Number: US-ABBVIE-21K-163-4053708-00

PATIENT
  Age: 25 Year
  Sex: Female
  Weight: 47.216 kg

DRUGS (8)
  1. HUMIRA [Suspect]
     Active Substance: ADALIMUMAB
     Indication: Crohn^s disease
     Route: 058
     Dates: start: 20200820
  2. Covid 19 vaccine (NON-ABBVIE) [Concomitant]
     Indication: COVID-19 immunisation
     Dosage: PFIZER
     Route: 030
     Dates: start: 20210303, end: 20210303
  3. Covid 19 vaccine (NON-ABBVIE) [Concomitant]
     Dosage: PFIZER
     Route: 030
     Dates: start: 20210324, end: 20210324
  4. Apriso (NON-ABBVIE) [Concomitant]
     Indication: Inflammatory bowel disease
  5. Forteo (NON-ABBVIE) [Concomitant]
     Indication: Osteoporosis
  6. Larin (NON-ABBVIE) [Concomitant]
     Indication: Contraception
  7. Calcium Magnesium Vitamin D (NON-ABBVIE) [Concomitant]
     Indication: Supplementation therapy
  8. Vitamin D3 (NON-ABBVIE) [Concomitant]
     Indication: Supplementation therapy

REACTIONS (7)
  - Cholelithiasis [Recovered/Resolved]
  - Cholecystitis [Recovered/Resolved]
  - Hepatic enzyme increased [Not Recovered/Not Resolved]
  - Cholangitis sclerosing [Not Recovered/Not Resolved]
  - Scar [Unknown]
  - Muscle atrophy [Unknown]
  - Nasopharyngitis [Unknown]

NARRATIVE: CASE EVENT DATE: 20200901
